FAERS Safety Report 13255710 (Version 2)
Quarter: 2017Q1

REPORT INFORMATION
  Report Type: Spontaneous
  Country: GB (occurrence: GB)
  Receive Date: 20170221
  Receipt Date: 20170329
  Transmission Date: 20170428
  Serious: Yes (Other)
  Sender: FDA-Public Use
  Company Number: GB-BAYER-2017-032673

PATIENT
  Age: 35 Year
  Sex: Female

DRUGS (3)
  1. METOJECT [Suspect]
     Active Substance: METHOTREXATE SODIUM
     Indication: RHEUMATOID ARTHRITIS
     Dosage: 15 MG/0.4ML, UNK
     Route: 058
     Dates: start: 201612
  2. SULFASALAZINE. [Suspect]
     Active Substance: SULFASALAZINE
  3. NAPROXEN SODIUM ({= 220 MG) [Suspect]
     Active Substance: NAPROXEN SODIUM

REACTIONS (2)
  - Alanine aminotransferase increased [Recovered/Resolved]
  - Hepatomegaly [Not Recovered/Not Resolved]
